FAERS Safety Report 7478245-6 (Version None)
Quarter: 2011Q2

REPORT INFORMATION
  Report Type: 
  Country: None (occurrence: None)
  Receive Date: 20110513
  Receipt Date: 20110512
  Transmission Date: 20111010
  Serious: Yes (Life-Threatening, Other)
  Sender: FDA-Public Use
  Company Number: CA-ABBOTT-11P-028-0724768-00

PATIENT
  Age: 60 Year
  Sex: Female

DRUGS (1)
  1. NIASPAN [Suspect]
     Indication: PRODUCT USED FOR UNKNOWN INDICATION
     Route: 065

REACTIONS (5)
  - BURNING SENSATION [None]
  - OEDEMA PERIPHERAL [None]
  - DYSPNOEA [None]
  - URTICARIA [None]
  - SWELLING FACE [None]
